FAERS Safety Report 8068997-9 (Version None)
Quarter: 2012Q1

REPORT INFORMATION
  Report Type: 
  Country: None (occurrence: None)
  Receive Date: 20120118
  Receipt Date: 20120113
  Transmission Date: 20120608
  Serious: Yes (Death)
  Sender: FDA-Public Use
  Company Number: 2012SP001571

PATIENT
  Age: 21 Year
  Sex: Female
  Weight: 43.1 kg

DRUGS (6)
  1. REMERON [Suspect]
     Indication: DEPRESSION
     Dosage: 15 MG;QD;PO, 30 MG;QD;PO, 45 MG;QD;PO
     Route: 048
     Dates: start: 20111007, end: 20111013
  2. REMERON [Suspect]
     Indication: DEPRESSION
     Dosage: 15 MG;QD;PO, 30 MG;QD;PO, 45 MG;QD;PO
     Route: 048
     Dates: start: 20111014, end: 20120103
  3. REMERON [Suspect]
     Indication: DEPRESSION
     Dosage: 15 MG;QD;PO, 30 MG;QD;PO, 45 MG;QD;PO
     Route: 048
     Dates: start: 20111005, end: 20111006
  4. ABILIFY [Concomitant]
  5. SEROQUEL [Concomitant]
  6. FLUNITRAZEPAM [Concomitant]

REACTIONS (1)
  - COMPLETED SUICIDE [None]
